FAERS Safety Report 4316570-8 (Version None)
Quarter: 2004Q1

REPORT INFORMATION
  Report Type: 
  Country: None (occurrence: None)
  Receive Date: 20040312
  Receipt Date: 20040312
  Transmission Date: 20041129
  Serious: Yes (Other)
  Sender: FDA-Public Use
  Company Number: None

PATIENT
  Age: 48 Year
  Sex: Female
  Weight: 74.8435 kg

DRUGS (4)
  1. NARDIL [Suspect]
     Indication: DEPRESSION
     Dosage: 1        3 A DAY ORAL
     Route: 048
     Dates: start: 19910101, end: 20040311
  2. NARDIL [Suspect]
     Indication: PANIC DISORDER
     Dosage: 1        3 A DAY ORAL
     Route: 048
     Dates: start: 19910101, end: 20040311
  3. ESKALITH [Concomitant]
  4. DIAZEPAM [Concomitant]

REACTIONS (8)
  - ANXIETY [None]
  - CRYING [None]
  - DEPRESSION [None]
  - DRUG WITHDRAWAL SYNDROME [None]
  - HEADACHE [None]
  - PHARMACEUTICAL PRODUCT COMPLAINT [None]
  - TREMOR [None]
  - WEIGHT INCREASED [None]
